FAERS Safety Report 21321680 (Version 1)
Quarter: 2022Q3

REPORT INFORMATION
  Report Type: Spontaneous
  Country: US (occurrence: None)
  Receive Date: 20220909
  Receipt Date: 20220909
  Transmission Date: 20221027
  Serious: Yes (Hospitalization)
  Sender: FDA-Public Use
  Company Number: None

PATIENT
  Age: 64 Year
  Sex: Male
  Weight: 116.3 kg

DRUGS (10)
  1. PEMBROLIZUMAB [Suspect]
     Active Substance: PEMBROLIZUMAB
     Indication: Basal cell carcinoma
     Dates: start: 20211110
  2. TYLENOL ARTHRITIS PAIN [Concomitant]
     Active Substance: ACETAMINOPHEN
  3. IBUPROFEN [Concomitant]
     Active Substance: IBUPROFEN
  4. GINSING LIQUID WITH GINKO BILOBA [Concomitant]
  5. ASPIRIN [Concomitant]
     Active Substance: ASPIRIN
  6. VITAMIN E [Concomitant]
     Active Substance: .ALPHA.-TOCOPHEROL
  7. FISH OIL [Concomitant]
  8. CINNAMON BARK [Concomitant]
  9. MAGNESIUM [Concomitant]
  10. CENTRUM DAILY VITAMIN [Concomitant]

REACTIONS (4)
  - Respiratory fume inhalation disorder [None]
  - Sputum discoloured [None]
  - Productive cough [None]
  - Dyspnoea [None]

NARRATIVE: CASE EVENT DATE: 20220828
